FAERS Safety Report 7981620-4 (Version None)
Quarter: 2011Q4

REPORT INFORMATION
  Report Type: 
  Country: None (occurrence: None)
  Receive Date: 20111215
  Receipt Date: 20111205
  Transmission Date: 20120403
  Serious: Yes (Hospitalization, Other)
  Sender: FDA-Public Use
  Company Number: US-BAYER-2011-042809

PATIENT
  Age: 31 Year
  Sex: Female
  Weight: 99 kg

DRUGS (13)
  1. PRILOSEC [Concomitant]
     Dosage: 20 MG, BID
  2. EXCEDRIN (MIGRAINE) [Concomitant]
     Dosage: UNK UNK, PRN
  3. EFFEXOR XR [Concomitant]
     Dosage: 150 MG, QD
     Route: 048
     Dates: start: 20070523
  4. FAMOTIDINE [Concomitant]
     Dosage: 20 MG, BID
     Route: 048
     Dates: start: 20070823
  5. NAPROXEN (ALEVE) [Concomitant]
     Dosage: UNK UNK, PRN
  6. XENICAL [Concomitant]
  7. HYDROCODONE BITARTRATE AND ACETAMINOPHEN [Concomitant]
     Dosage: 10 MG, PRN
     Route: 048
     Dates: start: 20070823
  8. YASMIN [Suspect]
     Indication: CONTRACEPTION
     Dosage: UNK
     Dates: start: 20060331, end: 20080101
  9. FASTIN [Concomitant]
  10. SEROQUEL [Concomitant]
     Dosage: 50 MG, QD
     Route: 048
     Dates: start: 20070523
  11. LORCET-HD [Concomitant]
  12. IBUPROFEN [Concomitant]
     Dosage: UNK UNK, PRN
  13. MECLIZINE [Concomitant]
     Dosage: 12.5 MG, TID
     Route: 048
     Dates: start: 20070612

REACTIONS (15)
  - CHOLELITHIASIS [None]
  - ANXIETY [None]
  - VOMITING [None]
  - UTERINE LEIOMYOMA [None]
  - ANHEDONIA [None]
  - CHEST PAIN [None]
  - DIZZINESS [None]
  - NEPHROLITHIASIS [None]
  - GASTROINTESTINAL DISORDER [None]
  - PSYCHOLOGICAL TRAUMA [None]
  - BLOOD CHOLESTEROL INCREASED [None]
  - PAIN [None]
  - CHOLECYSTITIS INFECTIVE [None]
  - POST CHOLECYSTECTOMY SYNDROME [None]
  - DEPRESSION [None]
